FAERS Safety Report 18474006 (Version 3)
Quarter: 2020Q4

REPORT INFORMATION
  Report Type: Spontaneous
  Country: JP (occurrence: JP)
  Receive Date: 20201106
  Receipt Date: 20201125
  Transmission Date: 20210114
  Serious: Yes (Other)
  Sender: FDA-Public Use
  Company Number: JP-JNJFOC-20201102771

PATIENT
  Age: 40 Year
  Sex: Male
  Weight: 125 kg

DRUGS (5)
  1. XEPLION [Suspect]
     Active Substance: PALIPERIDONE PALMITATE
  2. XEPLION [Suspect]
     Active Substance: PALIPERIDONE PALMITATE
  3. SLO-BID [Concomitant]
     Active Substance: THEOPHYLLINE ANHYDROUS
     Indication: ASTHMA
     Dosage: THEOPHYLLINE
     Route: 048
  4. FLUNITRAZEPAM [Concomitant]
     Active Substance: FLUNITRAZEPAM
     Indication: PSYCHIATRIC SYMPTOM
     Dosage: PER ORAL MEDICINE
     Route: 048
  5. XEPLION [Suspect]
     Active Substance: PALIPERIDONE PALMITATE
     Indication: SCHIZOPHRENIA
     Dosage: LEFT DELTOID MUSCLE?PALIPERIDONE PALMITATE:25MG
     Route: 030
     Dates: start: 20201029, end: 20201029

REACTIONS (4)
  - Pyrexia [Recovered/Resolved]
  - Administration site inflammation [Recovering/Resolving]
  - Chills [Recovered/Resolved]
  - Myalgia [Recovered/Resolved]

NARRATIVE: CASE EVENT DATE: 20201029
